FAERS Safety Report 9403184 (Version 1)
Quarter: 2013Q3

REPORT INFORMATION
  Report Type: Spontaneous
  Country: US (occurrence: None)
  Receive Date: 20130715
  Receipt Date: 20130715
  Transmission Date: 20140515
  Serious: Yes (Other)
  Sender: FDA-Public Use
  Company Number: None

PATIENT
  Age: 82 Year
  Sex: Female
  Weight: 61.24 kg

DRUGS (1)
  1. CHLORHEXIDINE [Suspect]
     Indication: TOOTH EXTRACTION
     Dosage: 2T. 3XDAY  ORAL-RINSE + SPIT OUT
     Route: 048
     Dates: start: 20130425, end: 20130426

REACTIONS (2)
  - Feeling abnormal [None]
  - Swollen tongue [None]
